FAERS Safety Report 8858601 (Version 2)
Quarter: 2015Q3

REPORT INFORMATION
  Report Type: Report from Study
  Country: US (occurrence: US)
  Receive Date: 20121024
  Receipt Date: 20150911
  Transmission Date: 20151125
  Serious: Yes (Death)
  Sender: FDA-Public Use
  Company Number: US-ROCHE-1133717

PATIENT
  Sex: Female

DRUGS (3)
  1. RAPTIVA [Suspect]
     Active Substance: EFALIZUMAB
     Indication: PSORIASIS
     Dosage: EQUIVALENT TO 1.6 ML
     Route: 058
     Dates: start: 200611, end: 200706
  2. RAPTIVA [Suspect]
     Active Substance: EFALIZUMAB
     Indication: PUSTULAR PSORIASIS
     Dosage: CONDITIONING DOSE
     Route: 058
  3. RAPTIVA [Suspect]
     Active Substance: EFALIZUMAB
     Route: 058

REACTIONS (2)
  - Death [Fatal]
  - Drug ineffective [Unknown]
